FAERS Safety Report 18308046 (Version 1)
Quarter: 2020Q3

REPORT INFORMATION
  Report Type: Spontaneous
  Country: US (occurrence: US)
  Receive Date: 20200924
  Receipt Date: 20200924
  Transmission Date: 20201103
  Serious: Yes (Other)
  Sender: FDA-Public Use
  Company Number: US-SA-2018SA061015

PATIENT

DRUGS (3)
  1. TAXOTERE [Suspect]
     Active Substance: DOCETAXEL
     Dosage: 1 MG,Q3W
     Route: 065
     Dates: start: 20160215, end: 20160215
  2. PARAPLATIN [Concomitant]
     Active Substance: CARBOPLATIN
  3. TAXOTERE [Suspect]
     Active Substance: DOCETAXEL
     Indication: BREAST CANCER FEMALE
     Dosage: 1 MG,Q3W
     Route: 065
     Dates: start: 20151102, end: 20151102

REACTIONS (6)
  - Impaired quality of life [Unknown]
  - Alopecia [Recovering/Resolving]
  - Anxiety [Unknown]
  - Emotional distress [Unknown]
  - Psychological trauma [Unknown]
  - Pain [Unknown]

NARRATIVE: CASE EVENT DATE: 201512
